FAERS Safety Report 9914821 (Version 3)
Quarter: 2014Q2

REPORT INFORMATION
  Report Type: Spontaneous
  Country: IT (occurrence: IT)
  Receive Date: 20140220
  Receipt Date: 20140527
  Transmission Date: 20141212
  Serious: Yes (Hospitalization)
  Sender: FDA-Public Use
  Company Number: IT-US-EMD SERONO, INC.-7269643

PATIENT
  Age: 57 Year
  Sex: Male

DRUGS (12)
  1. SOMATROPIN [Suspect]
     Indication: GONADOTROPHIN DEFICIENCY
     Route: 058
     Dates: start: 20030301
  2. SOMATROPIN [Suspect]
     Dates: end: 20140127
  3. TESTOSTERONE ENANTHATE [Suspect]
     Indication: SECONDARY HYPOGONADISM
     Route: 030
     Dates: start: 20030101, end: 20140127
  4. TRIATEC                            /00885601/ [Concomitant]
     Indication: PRODUCT USED FOR UNKNOWN INDICATION
  5. SUSTANON                           /00418401/ [Concomitant]
     Indication: PRODUCT USED FOR UNKNOWN INDICATION
     Dates: end: 20140127
  6. CORTONE [Concomitant]
     Indication: ADRENAL INSUFFICIENCY
     Route: 048
  7. CARDIRENE [Concomitant]
     Indication: PRODUCT USED FOR UNKNOWN INDICATION
  8. KEPPRA [Concomitant]
     Indication: PRODUCT USED FOR UNKNOWN INDICATION
     Dosage: 500+500+1750MG PER DAY
  9. EUTIROX                            /00068001/ [Concomitant]
     Indication: PRODUCT USED FOR UNKNOWN INDICATION
     Route: 048
  10. DESMOPRESSIN ACETATE [Concomitant]
     Indication: DIABETES INSIPIDUS
  11. COLECALCIFEROL [Concomitant]
     Indication: PRODUCT USED FOR UNKNOWN INDICATION
  12. CITALOPRAM [Concomitant]
     Indication: PRODUCT USED FOR UNKNOWN INDICATION
     Dosage: 5 DROPS

REACTIONS (1)
  - Prostate cancer metastatic [Unknown]
